FAERS Safety Report 24666093 (Version 1)
Quarter: 2024Q4

REPORT INFORMATION
  Report Type: Spontaneous
  Country: US (occurrence: US)
  Receive Date: 20241126
  Receipt Date: 20241126
  Transmission Date: 20250115
  Serious: Yes (Hospitalization)
  Sender: UROGEN PHARMA
  Company Number: US-UROGEN PHARMA LTD.-2024-UGN-000153

PATIENT

DRUGS (12)
  1. JELMYTO [Suspect]
     Active Substance: MITOMYCIN
     Indication: Transitional cell cancer of the renal pelvis and ureter
     Dosage: 28 MILLIGRAM, QW, INSTILLATION (ANTEGRADE)
     Dates: start: 20240912, end: 20240912
  2. JELMYTO [Suspect]
     Active Substance: MITOMYCIN
     Dosage: 28 MILLIGRAM, QW, INSTILLATION (ANTEGRADE)
     Dates: start: 20240919, end: 20240919
  3. JELMYTO [Suspect]
     Active Substance: MITOMYCIN
     Dosage: 28 MILLIGRAM, QW, INSTILLATION (ANTEGRADE)
     Dates: start: 20241003, end: 20241003
  4. JELMYTO [Suspect]
     Active Substance: MITOMYCIN
     Dosage: 28 MILLIGRAM, QW, INSTILLATION (ANTEGRADE)
     Dates: start: 20241017, end: 20241017
  5. AMITRIPTYLINE [Concomitant]
     Active Substance: AMITRIPTYLINE
     Indication: Depression
     Dosage: 50 MILLIGRAM
  6. CHLORTHALIDONE [Concomitant]
     Active Substance: CHLORTHALIDONE
     Indication: Hypertension
     Dosage: 25 MILLIGRAM
  7. LISINOPRIL [Concomitant]
     Active Substance: LISINOPRIL
     Indication: Hypertension
     Dosage: 40 MILLIGRAM
  8. CEFIXIME [Concomitant]
     Active Substance: CEFIXIME
     Indication: Back pain
     Dosage: 10 MILLIGRAM
  9. GABAPENTIN [Concomitant]
     Active Substance: GABAPENTIN
     Indication: Neuropathy peripheral
     Dosage: 300 MILLIGRAM, TID
  10. METFORMIN [Concomitant]
     Active Substance: METFORMIN HYDROCHLORIDE
     Indication: Type 2 diabetes mellitus
     Dosage: UNK
  11. ROSUVASTATIN [Concomitant]
     Active Substance: ROSUVASTATIN
     Indication: Hypercholesterolaemia
     Dosage: 10 MILLIGRAM
  12. OMEPRAZOLE [Concomitant]
     Active Substance: OMEPRAZOLE
     Indication: Gastrooesophageal reflux disease
     Dosage: 20 MILLIGRAM

REACTIONS (1)
  - Urinary tract infection [Recovering/Resolving]

NARRATIVE: CASE EVENT DATE: 20240929
